FAERS Safety Report 16056472 (Version 1)
Quarter: 2019Q1

REPORT INFORMATION
  Report Type: Spontaneous
  Country: US (occurrence: US)
  Receive Date: 20190311
  Receipt Date: 20190311
  Transmission Date: 20190418
  Serious: No
  Sender: FDA-Public Use
  Company Number: US-ALLERGAN-1900257US

PATIENT
  Age: 64 Year
  Sex: Female

DRUGS (3)
  1. GELNIQUE [Suspect]
     Active Substance: OXYBUTYNIN
     Dosage: 10 MG, UNK
     Route: 065
     Dates: start: 201708
  2. GELNIQUE [Suspect]
     Active Substance: OXYBUTYNIN
     Indication: INCONTINENCE
     Dosage: 5 MG, UNK
     Route: 065
     Dates: start: 201710
  3. UNSPECIFIED MEDICATIONS [Concomitant]
     Active Substance: UNSPECIFIED INGREDIENT

REACTIONS (3)
  - Blood pressure increased [Unknown]
  - Drug ineffective [Unknown]
  - Dry mouth [Unknown]
